FAERS Safety Report 20460836 (Version 1)
Quarter: 2022Q1

REPORT INFORMATION
  Report Type: Spontaneous
  Country: US (occurrence: None)
  Receive Date: 20220210
  Receipt Date: 20220210
  Transmission Date: 20220423
  Serious: Yes (Life-Threatening)
  Sender: FDA-Public Use
  Company Number: None

PATIENT
  Age: 35 Year
  Sex: Female
  Weight: 74.7 kg

DRUGS (13)
  1. MONTELUKAST [Suspect]
     Active Substance: MONTELUKAST SODIUM
     Indication: Asthma exercise induced
     Route: 048
  2. MONTELUKAST [Suspect]
     Active Substance: MONTELUKAST SODIUM
     Indication: Hypersensitivity
  3. QVAR [Concomitant]
     Active Substance: BECLOMETHASONE DIPROPIONATE
  4. ALBUTEROL [Concomitant]
     Active Substance: ALBUTEROL
  5. LOW DOSE ASPIRIN [Concomitant]
     Active Substance: ASPIRIN
  6. CLARITIN [Concomitant]
     Active Substance: LORATADINE
  7. LISINOPRIL [Concomitant]
     Active Substance: LISINOPRIL
  8. CELEBREX [Concomitant]
     Active Substance: CELECOXIB
  9. VITAMIN D2 [Concomitant]
     Active Substance: ERGOCALCIFEROL
  10. RAW ALOE [Concomitant]
  11. PEPPERMINT OIL [Concomitant]
  12. EUCALYPTUS OIL [Concomitant]
  13. ROSEMARY OIL [Concomitant]

REACTIONS (6)
  - Fatigue [None]
  - Hypersomnia [None]
  - Obsessive-compulsive disorder [None]
  - Negative thoughts [None]
  - Self-injurious ideation [None]
  - Treatment failure [None]
